FAERS Safety Report 7244475-1 (Version None)
Quarter: 2011Q1

REPORT INFORMATION
  Report Type: 
  Country: None (occurrence: None)
  Receive Date: 20110125
  Receipt Date: 20110114
  Transmission Date: 20110831
  Serious: Yes (Other)
  Sender: FDA-Public Use
  Company Number: JP-PFIZER INC-2010180086

PATIENT
  Age: 80 Year
  Sex: Female

DRUGS (5)
  1. CELECOXIB [Suspect]
     Indication: ARTHRALGIA
     Dosage: 100 MG, 2X/DAY
     Route: 048
     Dates: start: 20101213, end: 20101214
  2. DEPAS [Concomitant]
     Dosage: UNK
     Route: 048
  3. AMLODIPINE [Concomitant]
     Dosage: UNK
  4. MERISLON [Concomitant]
  5. OMEPRAZOLE [Concomitant]
     Dosage: UNK
     Route: 048

REACTIONS (5)
  - PYREXIA [None]
  - HAEMATURIA [None]
  - RASH GENERALISED [None]
  - GASTROINTESTINAL HAEMORRHAGE [None]
  - HAEMORRHAGE SUBCUTANEOUS [None]
